FAERS Safety Report 23695723 (Version 2)
Quarter: 2024Q2

REPORT INFORMATION
  Report Type: Spontaneous
  Country: ES (occurrence: ES)
  Receive Date: 20240402
  Receipt Date: 20240409
  Transmission Date: 20240716
  Serious: Yes (Other)
  Sender: FDA-Public Use
  Company Number: ES-MACLEODS PHARMACEUTICALS US LTD-MAC2024046646

PATIENT

DRUGS (9)
  1. CELECOXIB [Suspect]
     Active Substance: CELECOXIB
     Indication: Pneumonia
     Dosage: 200 MILLIGRAM, BID
     Route: 048
  2. CELECOXIB [Suspect]
     Active Substance: CELECOXIB
     Indication: Papilloma viral infection
     Dosage: 200 MILLIGRAM, QD
     Route: 048
  3. CELECOXIB [Suspect]
     Active Substance: CELECOXIB
     Indication: Respiratory papilloma
  4. ERLOTINIB [Suspect]
     Active Substance: ERLOTINIB
     Indication: Pneumonia
     Dosage: 150 MILLIGRAM, QD
     Route: 048
  5. ERLOTINIB [Suspect]
     Active Substance: ERLOTINIB
     Indication: Papilloma viral infection
  6. ERLOTINIB [Suspect]
     Active Substance: ERLOTINIB
     Indication: Respiratory papilloma
  7. BEVACIZUMAB [Concomitant]
     Active Substance: BEVACIZUMAB
     Indication: Pneumonia
     Dosage: UNK
     Route: 026
  8. BEVACIZUMAB [Concomitant]
     Active Substance: BEVACIZUMAB
     Indication: Papilloma viral infection
     Dosage: UNK
     Route: 042
  9. BEVACIZUMAB [Concomitant]
     Active Substance: BEVACIZUMAB
     Indication: Respiratory papilloma

REACTIONS (1)
  - Renal impairment [Recovered/Resolved]
